FAERS Safety Report 9262135 (Version 2)
Quarter: 2013Q3

REPORT INFORMATION
  Report Type: Report from Study
  Country: FR (occurrence: FR)
  Receive Date: 20130430
  Receipt Date: 20130708
  Transmission Date: 20140515
  Serious: Yes (Other)
  Sender: FDA-Public Use
  Company Number: FR-AMGEN-FRACT2013029663

PATIENT
  Age: 74 Year
  Sex: Female

DRUGS (5)
  1. ETANERCEPT [Suspect]
     Indication: RHEUMATOID ARTHRITIS
     Dosage: 50 MG ONCE WEEKLY
     Route: 065
     Dates: start: 200810, end: 201105
  2. METHOTREXATE [Concomitant]
     Dosage: 20 MG, WEEKLY
     Dates: start: 200802, end: 200809
  3. METHOTREXATE [Concomitant]
     Dosage: 15 MG, WEEKLY
     Dates: start: 200809, end: 200811
  4. METHOTREXATE [Concomitant]
     Dosage: 10 MG, WEEKLY
     Dates: start: 200811, end: 200812
  5. METHOTREXATE [Concomitant]
     Dosage: 15 MG, WEEKLY
     Dates: start: 200812, end: 201106

REACTIONS (1)
  - Dermatitis bullous [Recovered/Resolved]
